FAERS Safety Report 5387971-4 (Version None)
Quarter: 2007Q3

REPORT INFORMATION
  Report Type: 
  Country: None (occurrence: None)
  Receive Date: 20070716
  Receipt Date: 20061011
  Transmission Date: 20080115
  Serious: No
  Sender: FDA-Public Use
  Company Number: A0623051A

PATIENT

DRUGS (2)
  1. NICORETTE (MINT) [Suspect]
  2. COMMIT [Suspect]

REACTIONS (2)
  - GOUT [None]
  - INTENTIONAL DRUG MISUSE [None]
